FAERS Safety Report 8129600-2 (Version None)
Quarter: 2012Q1

REPORT INFORMATION
  Report Type: 
  Country: None (occurrence: None)
  Receive Date: 20120210
  Receipt Date: 20120202
  Transmission Date: 20120608
  Serious: Yes (Other)
  Sender: FDA-Public Use
  Company Number: BR-GLAXOSMITHKLINE-A0965199A

PATIENT
  Sex: Female
  Weight: 13 kg

DRUGS (1)
  1. FLUTICASONE PROPIONATE [Suspect]
     Indication: ASTHMA
     Dosage: 2PUFF TWICE PER DAY
     Route: 055
     Dates: start: 20100101

REACTIONS (2)
  - ASTHMATIC CRISIS [None]
  - WRONG TECHNIQUE IN DRUG USAGE PROCESS [None]
